FAERS Safety Report 9760074 (Version 1)
Quarter: 2013Q4

REPORT INFORMATION
  Report Type: Spontaneous
  Country: US (occurrence: US)
  Receive Date: 20131216
  Receipt Date: 20131216
  Transmission Date: 20140711
  Serious: Yes (Other)
  Sender: FDA-Public Use
  Company Number: US-JNJFOC-20131205654

PATIENT
  Age: 72 Year
  Sex: Female
  Weight: 59.42 kg

DRUGS (11)
  1. REMICADE [Suspect]
     Indication: COLITIS ULCERATIVE
     Route: 042
     Dates: start: 20130717
  2. REMICADE [Suspect]
     Indication: COLITIS ULCERATIVE
     Route: 042
     Dates: start: 20130801
  3. REMICADE [Suspect]
     Indication: COLITIS ULCERATIVE
     Route: 042
     Dates: start: 20131024
  4. REMICADE [Suspect]
     Indication: COLITIS ULCERATIVE
     Route: 042
     Dates: start: 20130828
  5. PREDNISONE [Concomitant]
     Route: 048
     Dates: start: 201311
  6. AZATHIOPRINE [Concomitant]
     Route: 048
     Dates: start: 20130717
  7. PROBIOTIC [Concomitant]
     Route: 048
     Dates: start: 2009
  8. CENTRUM SILVER MULTIVITAMINS [Concomitant]
     Route: 048
  9. CALTRATE 600 +D [Concomitant]
     Route: 065
  10. TYLENOL [Concomitant]
     Indication: PAIN
     Route: 048
  11. CLOBETASOL [Concomitant]
     Indication: PSORIASIS
     Route: 065
     Dates: start: 2011

REACTIONS (3)
  - Salivary gland cyst [Recovered/Resolved]
  - Immunodeficiency [Not Recovered/Not Resolved]
  - Drug ineffective [Unknown]
